FAERS Safety Report 4997788-8 (Version None)
Quarter: 2006Q2

REPORT INFORMATION
  Report Type: 
  Country: None (occurrence: None)
  Receive Date: 20060510
  Receipt Date: 20060503
  Transmission Date: 20061013
  Serious: Yes (Death, Other)
  Sender: FDA-Public Use
  Company Number: CH-JNJFOC-20060500812

PATIENT
  Sex: Female

DRUGS (3)
  1. CAELYX [Suspect]
     Route: 042
  2. TAVEGYL [Concomitant]
  3. MEPHAMESON [Concomitant]

REACTIONS (1)
  - ALVEOLITIS FIBROSING [None]
